FAERS Safety Report 19776328 (Version 1)
Quarter: 2021Q3

REPORT INFORMATION
  Report Type: Spontaneous
  Country: IT (occurrence: IT)
  Receive Date: 20210901
  Receipt Date: 20210901
  Transmission Date: 20211014
  Serious: Yes (Other)
  Sender: FDA-Public Use
  Company Number: IT-BAUSCH-BL-2021-028394

PATIENT
  Age: 54 Year
  Sex: Female

DRUGS (2)
  1. HYALURONIDASE [Suspect]
     Active Substance: HYALURONIDASE
     Indication: SURGERY
  2. HYALURONIDASE [Suspect]
     Active Substance: HYALURONIDASE
     Indication: GRANULOMA
     Route: 065

REACTIONS (3)
  - Injection site reaction [Recovered/Resolved]
  - Skin lesion [Recovered/Resolved]
  - Post procedural complication [Recovered/Resolved]
